FAERS Safety Report 14874381 (Version 1)
Quarter: 2018Q2

REPORT INFORMATION
  Report Type: Spontaneous
  Country: CA (occurrence: CA)
  Receive Date: 20180510
  Receipt Date: 20180510
  Transmission Date: 20180711
  Serious: Yes (Other)
  Sender: FDA-Public Use
  Company Number: CA-BAYER-2018-089108

PATIENT
  Sex: Female

DRUGS (1)
  1. CLARITIN [Suspect]
     Active Substance: LORATADINE
     Dosage: 1 DF, UNK

REACTIONS (7)
  - Neuromyopathy [None]
  - Somnolence [None]
  - Loss of consciousness [None]
  - Hypersomnia [None]
  - Dizziness [None]
  - Feeling abnormal [None]
  - Incoherent [None]
